FAERS Safety Report 21007001 (Version 1)
Quarter: 2022Q2

REPORT INFORMATION
  Report Type: Report from Study
  Country: DE (occurrence: DE)
  Receive Date: 20220625
  Receipt Date: 20220625
  Transmission Date: 20220720
  Serious: Yes (Life-Threatening, Hospitalization, Other)
  Sender: FDA-Public Use
  Company Number: DE-BRISTOL-MYERS SQUIBB COMPANY-2022-033830

PATIENT
  Age: 69 Year
  Sex: Male
  Weight: 91.6 kg

DRUGS (5)
  1. LENALIDOMIDE [Suspect]
     Active Substance: LENALIDOMIDE
     Indication: Plasma cell myeloma
     Route: 048
     Dates: start: 20210901, end: 20220308
  2. DEXAMETHASONE [Suspect]
     Active Substance: DEXAMETHASONE
     Indication: Plasma cell myeloma
     Route: 048
     Dates: start: 20210901, end: 20220309
  3. CARFILZOMIB [Suspect]
     Active Substance: CARFILZOMIB
     Indication: Plasma cell myeloma
     Route: 042
     Dates: start: 20210901, end: 20220303
  4. MELPHALAN [Suspect]
     Active Substance: MELPHALAN
     Indication: Stem cell transplant
     Route: 042
     Dates: start: 20220408, end: 20220409
  5. PANTOPRAZOLE SODIUM [Concomitant]
     Active Substance: PANTOPRAZOLE SODIUM
     Indication: Prophylaxis
     Route: 048

REACTIONS (2)
  - Bone marrow failure [Recovered/Resolved]
  - Escherichia infection [Recovered/Resolved]

NARRATIVE: CASE EVENT DATE: 20220418
